FAERS Safety Report 23707437 (Version 1)
Quarter: 2024Q2

REPORT INFORMATION
  Report Type: Spontaneous
  Country: SE (occurrence: SE)
  Receive Date: 20240404
  Receipt Date: 20240404
  Transmission Date: 20240715
  Serious: No
  Sender: FDA-Public Use
  Company Number: SE-TEVA-VS-3154127

PATIENT
  Age: 29 Year
  Sex: Female

DRUGS (1)
  1. ISOTRETINOIN [Suspect]
     Active Substance: ISOTRETINOIN
     Indication: Product used for unknown indication
     Dosage: 5 CAPSULES DAILY
     Route: 065
     Dates: start: 202303

REACTIONS (1)
  - Unintended pregnancy [Not Recovered/Not Resolved]
